FAERS Safety Report 9027337 (Version 2)
Quarter: 2013Q4

REPORT INFORMATION
  Report Type: Spontaneous
  Country: GB (occurrence: GB)
  Receive Date: 20130123
  Receipt Date: 20131008
  Transmission Date: 20140711
  Serious: Yes (Life-Threatening, Hospitalization)
  Sender: FDA-Public Use
  Company Number: GB-MYLANLABS-2013S1000780

PATIENT
  Age: 91 Year
  Sex: 0

DRUGS (23)
  1. CIPROFLOXACIN [Suspect]
     Indication: UROSEPSIS
     Route: 041
     Dates: start: 20110324
  2. CIPROFLOXACIN [Suspect]
     Indication: UROSEPSIS
     Route: 048
     Dates: start: 20110325, end: 20110329
  3. DOXYCYCLINE [Suspect]
     Indication: CHRONIC OBSTRUCTIVE PULMONARY DISEASE
     Route: 048
     Dates: start: 20100804
  4. FLUCLOXACILLIN [Suspect]
     Indication: PRODUCT USED FOR UNKNOWN INDICATION
     Route: 048
     Dates: start: 20090710, end: 20090715
  5. LEVOFLOXACIN [Suspect]
     Indication: PNEUMONIA
     Dates: start: 20110218, end: 20110225
  6. LEVOFLOXACIN [Suspect]
     Indication: RENAL FAILURE ACUTE
     Dates: start: 20110218, end: 20110225
  7. LEVOFLOXACIN [Suspect]
     Indication: PNEUMONIA
     Route: 048
     Dates: start: 20110130, end: 20110206
  8. LEVOFLOXACIN [Suspect]
     Indication: RENAL FAILURE ACUTE
     Route: 048
     Dates: start: 20110130, end: 20110206
  9. BENZYLPENICILLIN [Suspect]
     Indication: PNEUMONIA
     Dates: start: 20110218
  10. BENZYLPENICILLIN [Suspect]
     Indication: PNEUMONIA
     Route: 041
     Dates: start: 20110130
  11. ERTAPENEM [Suspect]
     Indication: URINARY TRACT INFECTION
     Route: 042
     Dates: start: 20110330, end: 20110331
  12. ADCAL D3 [Concomitant]
     Indication: PRODUCT USED FOR UNKNOWN INDICATION
     Route: 048
  13. ASPIRIN [Concomitant]
     Indication: PRODUCT USED FOR UNKNOWN INDICATION
     Route: 048
  14. BUMETANIDE [Concomitant]
     Indication: PRODUCT USED FOR UNKNOWN INDICATION
     Route: 048
  15. IPRATROPIUM BROMIDE [Concomitant]
     Indication: PRODUCT USED FOR UNKNOWN INDICATION
  16. PARACETAMOL [Concomitant]
     Indication: PRODUCT USED FOR UNKNOWN INDICATION
     Route: 048
  17. QUETIAPINE [Concomitant]
     Indication: PRODUCT USED FOR UNKNOWN INDICATION
     Route: 048
  18. SALBUTAMOL [Concomitant]
     Indication: PRODUCT USED FOR UNKNOWN INDICATION
  19. SENNA [Concomitant]
     Indication: PRODUCT USED FOR UNKNOWN INDICATION
     Route: 048
  20. THIAMINE [Concomitant]
     Indication: PRODUCT USED FOR UNKNOWN INDICATION
     Route: 048
  21. UNIPHYLLIN CONTINUS [Concomitant]
     Indication: PRODUCT USED FOR UNKNOWN INDICATION
     Route: 048
  22. VITAMIN B COMPOUND /00003501/ [Concomitant]
     Indication: PRODUCT USED FOR UNKNOWN INDICATION
  23. ATORVASTATIN [Concomitant]
     Indication: PRODUCT USED FOR UNKNOWN INDICATION
     Route: 048

REACTIONS (4)
  - Urosepsis [Recovered/Resolved]
  - Clostridium difficile infection [Recovered/Resolved]
  - Diarrhoea [Recovered/Resolved]
  - Pneumonia [Recovered/Resolved]
